FAERS Safety Report 9130083 (Version 1)
Quarter: 2013Q1

REPORT INFORMATION
  Report Type: Spontaneous
  Country: US (occurrence: US)
  Receive Date: 20130228
  Receipt Date: 20130228
  Transmission Date: 20140127
  Serious: No
  Sender: FDA-Public Use
  Company Number: US-ABBOTT-13P-163-1042338-00

PATIENT
  Sex: Male
  Weight: 102.15 kg

DRUGS (3)
  1. ANDROGEL [Suspect]
     Indication: BLOOD TESTOSTERONE DECREASED
     Dosage: 4 PUMP ACTUATIONS
     Dates: start: 2012
  2. WATER PILL [Concomitant]
     Indication: HYPERTENSION
  3. STATIN [Concomitant]
     Indication: BLOOD CHOLESTEROL INCREASED

REACTIONS (1)
  - Rash [Not Recovered/Not Resolved]
